FAERS Safety Report 20553834 (Version 1)
Quarter: 2022Q1

REPORT INFORMATION
  Report Type: Other
  Country: CA (occurrence: CA)
  Receive Date: 20220304
  Receipt Date: 20220304
  Transmission Date: 20220423
  Serious: Yes (Death)
  Sender: FDA-Public Use
  Company Number: CA-INTERCEPT-PM2022000308

PATIENT
  Age: 77 Year
  Sex: Female

DRUGS (4)
  1. OCALIVA [Suspect]
     Active Substance: OBETICHOLIC ACID
     Indication: Primary biliary cholangitis
     Dosage: 5 MILLIGRAM, QD
     Route: 048
     Dates: start: 20180707
  2. URSODIOL [Concomitant]
     Active Substance: URSODIOL
     Dosage: 1500 MILLIGRAM, QD
  3. SYNTHROID [Concomitant]
     Active Substance: LEVOTHYROXINE SODIUM
     Dosage: UNK
  4. NAPROXEN [Concomitant]
     Active Substance: NAPROXEN
     Dosage: UNK

REACTIONS (4)
  - Death [Fatal]
  - Gait inability [Unknown]
  - Aphasia [Unknown]
  - Palliative care [Unknown]

NARRATIVE: CASE EVENT DATE: 20220218
